FAERS Safety Report 17895647 (Version 1)
Quarter: 2020Q2

REPORT INFORMATION
  Report Type: Spontaneous
  Country: US (occurrence: US)
  Receive Date: 20200615
  Receipt Date: 20200615
  Transmission Date: 20200714
  Serious: No
  Sender: FDA-Public Use
  Company Number: US-BAYER-2020-115873

PATIENT
  Age: 78 Year
  Sex: Female

DRUGS (1)
  1. GADAVIST [Suspect]
     Active Substance: GADOBUTROL
     Indication: MAGNETIC RESONANCE IMAGING BRAIN
     Dosage: 6 ML, ONCE
     Route: 042
     Dates: start: 20200609, end: 20200609

REACTIONS (3)
  - Mouth swelling [None]
  - Headache [None]
  - Flushing [Not Recovered/Not Resolved]

NARRATIVE: CASE EVENT DATE: 20200609
